FAERS Safety Report 9896101 (Version 2)
Quarter: 2014Q1

REPORT INFORMATION
  Report Type: Spontaneous
  Country: US (occurrence: US)
  Receive Date: 20140213
  Receipt Date: 20140213
  Transmission Date: 20141002
  Serious: No
  Sender: FDA-Public Use
  Company Number: US-BRISTOL-MYERS SQUIBB COMPANY-19597129

PATIENT
  Age: 26 Year
  Sex: Female

DRUGS (2)
  1. ORENCIA FOR INJ 250 MG/VIAL [Suspect]
     Indication: RHEUMATOID ARTHRITIS
     Dosage: LAST DOSE: 17SEP2013
     Route: 042
     Dates: start: 20121024
  2. HYDROCODONE [Concomitant]

REACTIONS (1)
  - Postural orthostatic tachycardia syndrome [Unknown]
